FAERS Safety Report 24380146 (Version 1)
Quarter: 2024Q3

REPORT INFORMATION
  Report Type: Spontaneous
  Country: JP (occurrence: JP)
  Receive Date: 20240930
  Receipt Date: 20240930
  Transmission Date: 20241017
  Serious: Yes (Other)
  Sender: SANDOZ
  Company Number: JP-002147023-NVSJ2023JP011309

PATIENT
  Age: 52 Year
  Sex: Male
  Weight: 54.9 kg

DRUGS (11)
  1. AMITIZA [Suspect]
     Active Substance: LUBIPROSTONE
     Indication: Constipation
     Dosage: 24 UG, BID
     Route: 048
     Dates: end: 20230721
  2. CLOZARIL [Suspect]
     Active Substance: CLOZAPINE
     Dosage: 25 MG
     Route: 048
     Dates: start: 20230718, end: 20230718
  3. CLOZARIL [Suspect]
     Active Substance: CLOZAPINE
     Dosage: 25 MG, BID
     Route: 048
     Dates: start: 20230712, end: 20230718
  4. CLOZARIL [Suspect]
     Active Substance: CLOZAPINE
     Indication: Schizophrenia
     Dosage: 50 MG
     Route: 048
     Dates: start: 20230628, end: 20230717
  5. LANSOPRAZOLE [Suspect]
     Active Substance: LANSOPRAZOLE
     Indication: Dyspepsia
     Dosage: 30 MG, QD
     Route: 048
     Dates: end: 20230721
  6. LITHIUM CARBONATE [Suspect]
     Active Substance: LITHIUM CARBONATE
     Indication: Mania
     Dosage: 400 MG, BID
     Route: 048
     Dates: end: 20230721
  7. MOSAPRIDE CITRATE [Suspect]
     Active Substance: MOSAPRIDE CITRATE
     Indication: Dyspepsia
     Dosage: 5 MG, QD
     Route: 048
     Dates: end: 20230721
  8. MAGNESIUM OXIDE [Suspect]
     Active Substance: MAGNESIUM OXIDE
     Indication: Constipation
     Dosage: 330 MG, TID
     Route: 048
     Dates: start: 20230705, end: 20230721
  9. FLUNITRAZEPAM [Concomitant]
     Active Substance: FLUNITRAZEPAM
     Indication: Product used for unknown indication
     Dosage: UNK
     Route: 048
  10. INVEGA [Concomitant]
     Active Substance: PALIPERIDONE
     Indication: Product used for unknown indication
     Dosage: UNK
     Route: 048
  11. QUETIAPINE [Concomitant]
     Active Substance: QUETIAPINE
     Indication: Product used for unknown indication
     Dosage: UNK
     Route: 048

REACTIONS (6)
  - Blood creatinine increased [Not Recovered/Not Resolved]
  - Pyrexia [Not Recovered/Not Resolved]
  - Tubulointerstitial nephritis [Not Recovered/Not Resolved]
  - Kidney enlargement [Unknown]
  - Renal impairment [Recovering/Resolving]
  - Glucose tolerance impaired [Unknown]

NARRATIVE: CASE EVENT DATE: 20230714
